FAERS Safety Report 4673826-7 (Version None)
Quarter: 2005Q2

REPORT INFORMATION
  Report Type: 
  Country: None (occurrence: None)
  Receive Date: 20050524
  Receipt Date: 20050509
  Transmission Date: 20051028
  Serious: Yes (Other)
  Sender: FDA-Public Use
  Company Number: FR_050506382

PATIENT
  Age: 70 Year
  Sex: Female

DRUGS (1)
  1. GEMZAR [Suspect]
     Indication: BREAST CANCER
     Dosage: 1000 MG/M2 OTHER
     Dates: start: 20050301

REACTIONS (1)
  - THROMBOCYTHAEMIA [None]
